FAERS Safety Report 5858204-7 (Version None)
Quarter: 2008Q3

REPORT INFORMATION
  Report Type: 
  Country: None (occurrence: None)
  Receive Date: 20080826
  Receipt Date: 20080822
  Transmission Date: 20090109
  Serious: Yes (Hospitalization)
  Sender: FDA-Public Use
  Company Number: A0731293A

PATIENT
  Age: 73 Year
  Sex: Female
  Weight: 81.8 kg

DRUGS (5)
  1. AVANDIA [Suspect]
     Dosage: 8MG PER DAY
     Route: 048
     Dates: start: 20001101, end: 20070801
  2. GLUCOPHAGE [Concomitant]
     Dates: start: 19970801, end: 20020101
  3. METFORMIN HCL [Concomitant]
     Dates: start: 19970801, end: 20020101
  4. LANTUS [Concomitant]
     Dates: start: 20040201
  5. AMARYL [Concomitant]
     Dates: start: 20040201

REACTIONS (3)
  - BRONCHOSPASM [None]
  - CARDIAC FAILURE CONGESTIVE [None]
  - MYOCARDIAL INFARCTION [None]
